FAERS Safety Report 25902016 (Version 1)
Quarter: 2025Q4

REPORT INFORMATION
  Report Type: Report from Study
  Country: US (occurrence: US)
  Receive Date: 20251009
  Receipt Date: 20251009
  Transmission Date: 20260117
  Serious: Yes (Other)
  Sender: UCB
  Company Number: US-UCBSA-2025063402

PATIENT
  Sex: Male

DRUGS (2)
  1. BRIVARACETAM [Suspect]
     Active Substance: BRIVARACETAM
     Indication: Focal dyscognitive seizures
     Dosage: 50 MILLIGRAM, 2X/DAY (BID)
     Route: 048
  2. NAYZILAM [Suspect]
     Active Substance: MIDAZOLAM
     Indication: Focal dyscognitive seizures
     Dosage: 5 MILLIGRAM SINGLE SPRAY IN 1 NOSTRIL
     Route: 045

REACTIONS (2)
  - Seizure [Unknown]
  - Product use in unapproved indication [Unknown]
